FAERS Safety Report 6997697-9 (Version None)
Quarter: 2010Q3

REPORT INFORMATION
  Report Type: 
  Country: None (occurrence: None)
  Receive Date: 20100918
  Receipt Date: 20091118
  Transmission Date: 20110219
  Serious: No
  Sender: FDA-Public Use
  Company Number: US-WYE-H12231809

PATIENT
  Sex: Female
  Weight: 63.56 kg

DRUGS (4)
  1. PRISTIQ [Suspect]
     Route: 048
     Dates: start: 20090801
  2. SPIRIVA [Concomitant]
  3. FLUTICASONE PROPIONATE [Concomitant]
  4. OMEPRAZOLE [Concomitant]

REACTIONS (4)
  - HYPERHIDROSIS [None]
  - INCREASED APPETITE [None]
  - INSOMNIA [None]
  - WEIGHT INCREASED [None]
